FAERS Safety Report 23941355 (Version 1)
Quarter: 2024Q2

REPORT INFORMATION
  Report Type: Spontaneous
  Country: US (occurrence: None)
  Receive Date: 20240604
  Receipt Date: 20240604
  Transmission Date: 20240715
  Serious: Yes (unspecified)
  Sender: FDA-Public Use
  Company Number: None

PATIENT
  Age: 36 Year
  Sex: Male
  Weight: 72 kg

DRUGS (2)
  1. MONTELUKAST [Suspect]
     Active Substance: MONTELUKAST SODIUM
     Indication: Multiple allergies
  2. DESCOVY [Concomitant]
     Active Substance: EMTRICITABINE\TENOFOVIR ALAFENAMIDE FUMARATE

REACTIONS (18)
  - Depression [None]
  - Influenza like illness [None]
  - Drug withdrawal syndrome [None]
  - Dizziness [None]
  - Pain [None]
  - Hyperhidrosis [None]
  - Feeling jittery [None]
  - Brain fog [None]
  - Anxiety [None]
  - Arthralgia [None]
  - Asthenia [None]
  - Heart rate increased [None]
  - Nausea [None]
  - Decreased appetite [None]
  - Abdominal discomfort [None]
  - Thirst [None]
  - Dry mouth [None]
  - Pollakiuria [None]
